FAERS Safety Report 4421693-9 (Version None)
Quarter: 2004Q3

REPORT INFORMATION
  Report Type: 
  Country: None (occurrence: None)
  Receive Date: 20040804
  Receipt Date: 20040721
  Transmission Date: 20050211
  Serious: Yes (Hospitalization)
  Sender: FDA-Public Use
  Company Number: L04-USA-03197-01

PATIENT
  Age: 47 Year
  Sex: Female

DRUGS (3)
  1. CARBAMAZEPINE [Suspect]
     Indication: BIPOLAR DISORDER
     Dosage: 800 MG QD PO
     Route: 048
  2. CARBAMAZEPINE [Suspect]
     Indication: BIPOLAR DISORDER
     Dosage: 1600 MG QD
  3. DILTIAZEM [Suspect]
     Indication: SINUS TACHYCARDIA
     Dosage: 120 MG QD

REACTIONS (14)
  - AGITATION [None]
  - ANTICONVULSANT DRUG LEVEL INCREASED [None]
  - AORTIC BYPASS [None]
  - ATAXIA [None]
  - CEREBELLAR SYNDROME [None]
  - CONFUSIONAL STATE [None]
  - DISORIENTATION [None]
  - DRUG INTERACTION [None]
  - DYSARTHRIA [None]
  - GAZE PALSY [None]
  - MYDRIASIS [None]
  - OPHTHALMOPLEGIA [None]
  - POST PROCEDURAL COMPLICATION [None]
  - TACHYCARDIA [None]
